FAERS Safety Report 25602960 (Version 1)
Quarter: 2025Q3

REPORT INFORMATION
  Report Type: Spontaneous
  Country: RU (occurrence: RU)
  Receive Date: 20250724
  Receipt Date: 20250724
  Transmission Date: 20251021
  Serious: Yes (Other)
  Sender: GLAXOSMITHKLINE
  Company Number: RU-GSK-RU2025GSK092840

PATIENT
  Age: 26 Year
  Sex: Female

DRUGS (24)
  1. LAMOTRIGINE [Interacting]
     Active Substance: LAMOTRIGINE
     Indication: Panic disorder
     Dosage: 25 MG, 1D
  2. LAMOTRIGINE [Interacting]
     Active Substance: LAMOTRIGINE
     Indication: Agoraphobia
  3. LAMOTRIGINE [Interacting]
     Active Substance: LAMOTRIGINE
     Indication: Cyclothymic disorder
     Dosage: 200 MG, 1D
  4. LAMOTRIGINE [Interacting]
     Active Substance: LAMOTRIGINE
     Indication: Affective disorder
  5. VITAMINS [Interacting]
     Active Substance: VITAMINS
     Indication: Product used for unknown indication
  6. GABAPENTIN [Concomitant]
     Active Substance: GABAPENTIN
     Indication: Panic disorder
     Dosage: 1200 MG, 1D
  7. GABAPENTIN [Concomitant]
     Active Substance: GABAPENTIN
     Indication: Agoraphobia
     Dosage: 300 MG, WE
  8. GABAPENTIN [Concomitant]
     Active Substance: GABAPENTIN
     Indication: Cyclothymic disorder
  9. ESCITALOPRAM [Concomitant]
     Active Substance: ESCITALOPRAM OXALATE
     Indication: Panic attack
     Dosage: 10 MG, 1D
  10. ESCITALOPRAM [Concomitant]
     Active Substance: ESCITALOPRAM OXALATE
     Dosage: 5 MG, 1D
  11. TRIMEPRAZINE [Concomitant]
     Active Substance: TRIMEPRAZINE
     Indication: Panic attack
     Dosage: 10 MG, 1D
  12. TRIMEPRAZINE [Concomitant]
     Active Substance: TRIMEPRAZINE
  13. TRIMEPRAZINE [Concomitant]
     Active Substance: TRIMEPRAZINE
  14. PROPRANOLOL [Concomitant]
     Active Substance: PROPRANOLOL HYDROCHLORIDE
     Indication: Panic attack
     Dosage: 10 MG, 1D
  15. ETIFOXINE [Concomitant]
     Active Substance: ETIFOXINE
     Indication: Anxiety
     Dosage: 50 MG, 1D
  16. ETIFOXINE [Concomitant]
     Active Substance: ETIFOXINE
     Dosage: 50 MG, 1D
  17. METOPROLOL [Concomitant]
     Active Substance: METOPROLOL
     Indication: Anxiety
  18. METOPROLOL [Concomitant]
     Active Substance: METOPROLOL
  19. FLUOXETINE [Concomitant]
     Active Substance: FLUOXETINE HYDROCHLORIDE
     Indication: Product used for unknown indication
     Dosage: 20 MG, 1D
  20. SERTRALINE [Concomitant]
     Active Substance: SERTRALINE HYDROCHLORIDE
     Indication: Product used for unknown indication
     Dosage: 100 MG, 1D
  21. LURASIDONE [Concomitant]
     Active Substance: LURASIDONE
     Indication: Depression
  22. LURASIDONE [Concomitant]
     Active Substance: LURASIDONE
     Indication: Weight increased
  23. LURASIDONE [Concomitant]
     Active Substance: LURASIDONE
  24. LURASIDONE [Concomitant]
     Active Substance: LURASIDONE
     Dosage: 40 MG, 1D

REACTIONS (4)
  - Bipolar disorder [Recovered/Resolved]
  - Condition aggravated [Recovered/Resolved]
  - Mental disorder [Recovered/Resolved]
  - Drug interaction [Recovered/Resolved]

NARRATIVE: CASE EVENT DATE: 20250101
